FAERS Safety Report 24575319 (Version 4)
Quarter: 2024Q4

REPORT INFORMATION
  Report Type: Spontaneous
  Country: US (occurrence: US)
  Receive Date: 20241104
  Receipt Date: 20241128
  Transmission Date: 20250114
  Serious: Yes (Hospitalization)
  Sender: SANDOZ
  Company Number: US-SANDOZ-SDZ2024US091512

PATIENT
  Age: 56 Year
  Sex: Female

DRUGS (3)
  1. TREPROSTINIL [Suspect]
     Active Substance: TREPROSTINIL
     Dosage: 14 NG/KG, CONT
     Route: 042
     Dates: start: 202410
  2. TREPROSTINIL [Suspect]
     Active Substance: TREPROSTINIL
     Indication: Pulmonary arterial hypertension
     Dosage: 2.5 MG/ML (10NG/KG/MIN)
     Route: 042
     Dates: start: 202410
  3. TREPROSTINIL [Suspect]
     Active Substance: TREPROSTINIL
     Dosage: UNK, CONT, 12NG/KG/MIN
     Route: 042
     Dates: start: 202410

REACTIONS (13)
  - Dyspnoea exertional [Unknown]
  - Migraine [Unknown]
  - Weight decreased [Unknown]
  - Movement disorder [Unknown]
  - Eating disorder [Unknown]
  - Pain [Unknown]
  - Nausea [Not Recovered/Not Resolved]
  - Vomiting [Unknown]
  - Decreased appetite [Unknown]
  - Pain in extremity [Unknown]
  - Limb discomfort [Unknown]
  - Fatigue [Unknown]
  - Headache [Unknown]

NARRATIVE: CASE EVENT DATE: 20241102
